FAERS Safety Report 26022148 (Version 3)
Quarter: 2025Q4

REPORT INFORMATION
  Report Type: Spontaneous
  Country: US (occurrence: US)
  Receive Date: 20251110
  Receipt Date: 20251201
  Transmission Date: 20260118
  Serious: Yes (Other)
  Sender: SANOFI AVENTIS
  Company Number: US-SANOFI-02715227

PATIENT
  Age: 9 Month
  Sex: Female
  Weight: 5.89 kg

DRUGS (1)
  1. BEYFORTUS [Suspect]
     Active Substance: NIRSEVIMAB-ALIP
     Indication: Antiviral prophylaxis
     Dosage: 100 MG, 1X
     Route: 030
     Dates: start: 20251017, end: 20251017

REACTIONS (15)
  - Bronchiolitis [Unknown]
  - Illness [Unknown]
  - Vomiting [Unknown]
  - Cough [Unknown]
  - Sneezing [Unknown]
  - Upper respiratory tract infection [Unknown]
  - Dysplasia [Unknown]
  - Decreased appetite [Unknown]
  - Diarrhoea [Unknown]
  - Rhinorrhoea [Unknown]
  - Lacrimation increased [Unknown]
  - Ear infection [Unknown]
  - Constipation [Unknown]
  - Pyrexia [Unknown]
  - Incorrect dose administered [Unknown]

NARRATIVE: CASE EVENT DATE: 20250101
